FAERS Safety Report 16511218 (Version 1)
Quarter: 2019Q3

REPORT INFORMATION
  Report Type: Spontaneous
  Country: CN (occurrence: CN)
  Receive Date: 20190702
  Receipt Date: 20190702
  Transmission Date: 20191004
  Serious: Yes (Hospitalization, Other)
  Sender: FDA-Public Use
  Company Number: PHHY2019CN147769

PATIENT
  Age: 44 Year
  Sex: Male

DRUGS (14)
  1. IRESSA [Concomitant]
     Active Substance: GEFITINIB
     Indication: FLUID REPLACEMENT
  2. CARBAMAZEPINE. [Suspect]
     Active Substance: CARBAMAZEPINE
     Indication: EPILEPSY
     Dosage: 0.1 G, BID
     Route: 048
  3. ZOLEDRONIC ACID [Concomitant]
     Active Substance: ZOLEDRONIC ACID
     Indication: METASTASES TO BONE
     Dosage: UNK
     Route: 065
  4. DIAZEPAM. [Concomitant]
     Active Substance: DIAZEPAM
     Indication: SEDATION
     Route: 065
  5. OSIMERTINIB. [Interacting]
     Active Substance: OSIMERTINIB
     Indication: METASTASES TO BONE
     Dosage: 80 MG, QD
     Route: 048
  6. IRESSA [Concomitant]
     Active Substance: GEFITINIB
     Indication: SEDATION
     Dosage: 0.25 G, QD
     Route: 048
  7. OSIMERTINIB. [Interacting]
     Active Substance: OSIMERTINIB
     Indication: SMALL CELL LUNG CANCER
  8. MANNITOL. [Concomitant]
     Active Substance: MANNITOL
     Indication: REDUCTION OF INCREASED INTRACRANIAL PRESSURE
     Dosage: UNK
     Route: 065
  9. METHYCOBAL [Concomitant]
     Active Substance: METHYLCOBALAMIN
     Indication: TINNITUS
     Dosage: UNK
     Route: 048
  10. SARIDON [Concomitant]
     Indication: ANALGESIC THERAPY
     Dosage: UNK
     Route: 065
  11. BETAHISTINE MESILATE [Concomitant]
     Active Substance: BETAHISTINE MESILATE
     Indication: TINNITUS
     Dosage: UNK
     Route: 048
  12. DEXAMETHASONE. [Concomitant]
     Active Substance: DEXAMETHASONE
     Indication: REDUCTION OF INCREASED INTRACRANIAL PRESSURE
     Dosage: UNK
     Route: 065
  13. BARACLUDE [Concomitant]
     Active Substance: ENTECAVIR
     Indication: HEPATITIS B
     Dosage: 0.5 MG, QD
     Route: 065
  14. DIAZEPAM. [Concomitant]
     Active Substance: DIAZEPAM
     Indication: FLUID REPLACEMENT

REACTIONS (6)
  - Drug level changed [Unknown]
  - Nausea [Unknown]
  - Headache [Unknown]
  - Seizure [Unknown]
  - Dizziness [Unknown]
  - Drug interaction [Unknown]
